FAERS Safety Report 6329710-6 (Version None)
Quarter: 2009Q3

REPORT INFORMATION
  Report Type: 
  Country: None (occurrence: None)
  Receive Date: 20090826
  Receipt Date: 20090817
  Transmission Date: 20100115
  Serious: Yes (Hospitalization)
  Sender: FDA-Public Use
  Company Number: DE-SANOFI-SYNTHELABO-D01200706928

PATIENT
  Sex: Female
  Weight: 50 kg

DRUGS (5)
  1. CLOPIDOGREL [Suspect]
     Indication: ANGINA UNSTABLE
     Dosage: 300 MG (+PLACEBO) D1 FOLLOWED BY 75 MG (+PLACEBO) D2 TO D7; 75 MG FROM D8 TO 30
     Route: 048
  2. PANTOPRAZOLE SODIUM [Concomitant]
     Dosage: 40 MG
     Route: 065
  3. CLOPIDOGREL [Suspect]
     Indication: ANGINA UNSTABLE
     Dosage: 600 MG LD D1 FOLLOWED BY 150 MG FROM D2 TO D7; 75 MG FROM D8 TO 30
     Route: 048
     Dates: start: 20070910, end: 20070912
  4. CLOPIDOGREL [Suspect]
     Dosage: 600 MG LD D1 FOLLOWED BY 150 MG FROM D2 TO D7; 75 MG FROM D8 TO 30
     Route: 048
     Dates: start: 20070918, end: 20071010
  5. ASA HIGH DOSE [Concomitant]
     Indication: ANGINA UNSTABLE
     Dosage: AT LEAST 300 MG D1; 300-325 MG FROM D2 TO D30
     Route: 048
     Dates: start: 20070910

REACTIONS (1)
  - DIVERTICULITIS [None]
